FAERS Safety Report 7348282-0 (Version None)
Quarter: 2011Q1

REPORT INFORMATION
  Report Type: 
  Country: None (occurrence: None)
  Receive Date: 20110311
  Receipt Date: 20110309
  Transmission Date: 20110831
  Serious: Yes (Hospitalization, Other)
  Sender: FDA-Public Use
  Company Number: FR-PFIZER INC-2011052590

PATIENT
  Age: 63 Year
  Sex: Male

DRUGS (2)
  1. CHAMPIX [Suspect]
     Dosage: UNK
     Dates: start: 20110101
  2. AMLOR [Concomitant]

REACTIONS (5)
  - APHAGIA [None]
  - MALAISE [None]
  - DYSPNOEA [None]
  - ASPHYXIA [None]
  - FATIGUE [None]
